FAERS Safety Report 8125964-4 (Version None)
Quarter: 2012Q1

REPORT INFORMATION
  Report Type: 
  Country: None (occurrence: None)
  Receive Date: 20120209
  Receipt Date: 20120130
  Transmission Date: 20120608
  Serious: Yes (Hospitalization)
  Sender: FDA-Public Use
  Company Number: US-NOVOPROD-343862

PATIENT
  Age: 65 Year
  Sex: Female

DRUGS (7)
  1. LEVEMIR [Suspect]
     Dosage: UNKNOWN
     Route: 058
  2. LEVEMIR [Suspect]
     Dosage: UNKNOWN
     Route: 058
  3. NOVOLOG [Suspect]
     Indication: DIABETES MELLITUS
     Dosage: UNKNOWN
     Route: 058
  4. NOVOLOG [Suspect]
     Dosage: UNKNOWN
     Route: 058
  5. LEVEMIR [Suspect]
     Dosage: UNKNOWN
     Route: 058
  6. LEVEMIR [Suspect]
     Dosage: UNKNOWN
     Route: 058
  7. LEVEMIR [Suspect]
     Indication: DIABETES MELLITUS
     Dosage: UNKNOWN
     Route: 058

REACTIONS (2)
  - CEREBROVASCULAR ACCIDENT [None]
  - DEVICE MALFUNCTION [None]
